FAERS Safety Report 21817146 (Version 1)
Quarter: 2023Q1

REPORT INFORMATION
  Report Type: Spontaneous
  Country: IT (occurrence: IT)
  Receive Date: 20230104
  Receipt Date: 20230104
  Transmission Date: 20230418
  Serious: Yes (Life-Threatening, Hospitalization)
  Sender: FDA-Public Use
  Company Number: None

PATIENT
  Age: 74 Year
  Sex: Female
  Weight: 62 kg

DRUGS (8)
  1. INLYTA [Suspect]
     Active Substance: AXITINIB
     Indication: Renal neoplasm
     Dosage: 3 MG X 2, EVERYDAY
     Route: 048
     Dates: start: 20220517, end: 20221227
  2. KEYTRUDA [Suspect]
     Active Substance: PEMBROLIZUMAB
     Indication: Renal neoplasm
     Dosage: 200 MG, EVERY 3 WEEKS
     Route: 042
     Dates: start: 20220517, end: 20221129
  3. LOBIDIUR [Concomitant]
     Active Substance: HYDROCHLOROTHIAZIDE\NEBIVOLOL HYDROCHLORIDE
     Dosage: 5 + 12.5 MG/DIE
     Route: 048
  4. INDAPAMIDE\PERINDOPRIL ARGININE [Concomitant]
     Active Substance: INDAPAMIDE\PERINDOPRIL ARGININE
     Dosage: 2.5/0.625 MG/DIE
     Route: 048
  5. PANTOPRAZOLE [Concomitant]
     Active Substance: PANTOPRAZOLE
     Dosage: 20 MG
  6. LEVOTIRSOL [Concomitant]
     Dosage: 50 UG
     Route: 048
  7. NALOXONE HYDROCHLORIDE\OXYCODONE HYDROCHLORIDE [Concomitant]
     Active Substance: NALOXONE HYDROCHLORIDE\OXYCODONE HYDROCHLORIDE
     Dosage: 10 + 5 MG 2 TABLETS/DIE
     Route: 048
  8. ALLOPURINOL [Concomitant]
     Active Substance: ALLOPURINOL
     Dosage: 300 MG, HALF TABLET/DIE

REACTIONS (1)
  - Autoimmune myocarditis [Unknown]

NARRATIVE: CASE EVENT DATE: 20221227
